FAERS Safety Report 16060638 (Version 6)
Quarter: 2024Q4

REPORT INFORMATION
  Report Type: Spontaneous
  Country: PL (occurrence: PL)
  Receive Date: 20190312
  Receipt Date: 20241225
  Transmission Date: 20250115
  Serious: Yes (Other)
  Sender: AUROBINDO
  Company Number: PL-AUROBINDO-AUR-APL-2019-012303

PATIENT
  Age: 22 Year
  Sex: Male

DRUGS (5)
  1. AMOXICILLIN\CLAVULANIC ACID [Suspect]
     Active Substance: AMOXICILLIN\CLAVULANIC ACID
     Indication: Skin lesion
     Dosage: 1 GRAM, TWO TIMES A DAY(1 G, BID (2/DAY))
     Route: 048
     Dates: start: 20160626, end: 20160724
  2. AMOXICILLIN\CLAVULANIC ACID [Suspect]
     Active Substance: AMOXICILLIN\CLAVULANIC ACID
     Indication: Tonsillar inflammation
  3. CLOBETASOL PROPIONATE [Suspect]
     Active Substance: CLOBETASOL PROPIONATE
     Indication: Skin lesion
     Dosage: 1 DOSAGE FORM, ONCE A DAY1 DF, QD (1/DAY)
     Route: 061
  4. RUPATADINE [Suspect]
     Active Substance: RUPATADINE
     Indication: Skin lesion
     Dosage: 1 DF DAILY
     Route: 065
  5. PREDNISONE [Suspect]
     Active Substance: PREDNISONE
     Indication: Skin lesion
     Dosage: 20 MG DAILY
     Route: 048

REACTIONS (8)
  - Skin disorder [Recovered/Resolved]
  - Skin haemorrhage [Recovered/Resolved]
  - Papule [Recovered/Resolved]
  - Pyrexia [Recovered/Resolved]
  - Tonsillar hypertrophy [Recovered/Resolved]
  - Condition aggravated [Recovered/Resolved]
  - Skin lesion [Recovered/Resolved]
  - Therapeutic product effect incomplete [Unknown]
